FAERS Safety Report 5934234-1 (Version None)
Quarter: 2008Q4

REPORT INFORMATION
  Report Type: 
  Country: None (occurrence: None)
  Receive Date: 20081027
  Receipt Date: 20081020
  Transmission Date: 20090506
  Serious: Yes (Hospitalization)
  Sender: FDA-Public Use
  Company Number: CIO08017770

PATIENT
  Age: 84 Year
  Sex: Female

DRUGS (2)
  1. METAMUCIL-2 [Suspect]
     Dosage: ORAL
     Route: 048
     Dates: start: 20080720
  2. ANTIHYPERTENSIVES [Concomitant]

REACTIONS (2)
  - CONSTIPATION [None]
  - RECTAL OBSTRUCTION [None]
